FAERS Safety Report 16357159 (Version 1)
Quarter: 2019Q2

REPORT INFORMATION
  Report Type: Spontaneous
  Country: US (occurrence: US)
  Receive Date: 20190527
  Receipt Date: 20190527
  Transmission Date: 20190711
  Serious: Yes (Hospitalization)
  Sender: FDA-Public Use
  Company Number: US-ROCHE-2325769

PATIENT
  Sex: Female
  Weight: 5.8 kg

DRUGS (6)
  1. VALCYTE [Suspect]
     Active Substance: VALGANCICLOVIR HYDROCHLORIDE
     Indication: CONGENITAL CYTOMEGALOVIRUS INFECTION
     Dosage: ONGOING:YES
     Route: 048
     Dates: start: 201901
  2. IDOXURIDINE [Concomitant]
     Active Substance: IDOXURIDINE
  3. KEPPRA [Concomitant]
     Active Substance: LEVETIRACETAM
  4. PHENOBARBITAL. [Concomitant]
     Active Substance: PHENOBARBITAL
  5. TOPIRAMATE. [Concomitant]
     Active Substance: TOPIRAMATE
  6. OXCARBAZEPINE. [Concomitant]
     Active Substance: OXCARBAZEPINE

REACTIONS (3)
  - Respiratory disorder [Unknown]
  - Intentional product use issue [Unknown]
  - Off label use [Unknown]
